FAERS Safety Report 6236187-8 (Version None)
Quarter: 2009Q2

REPORT INFORMATION
  Report Type: 
  Country: None (occurrence: None)
  Receive Date: 20090616
  Receipt Date: 20090602
  Transmission Date: 20091009
  Serious: Yes (Hospitalization)
  Sender: FDA-Public Use
  Company Number: 2009BM000122

PATIENT
  Age: 12 Year
  Sex: Female
  Weight: 40 kg

DRUGS (20)
  1. KUVAN [Suspect]
     Indication: METABOLIC DISORDER
     Dosage: 400 MG, BID, PO
     Route: 048
     Dates: start: 20090518, end: 20090528
  2. ZITHROMAX [Concomitant]
  3. CIPRODEX [Concomitant]
  4. FELBATOL [Concomitant]
  5. TOPAMAX [Concomitant]
  6. PHENOBARBITAL TAB [Concomitant]
  7. KEPPRA [Concomitant]
  8. ENALAPRIL [Concomitant]
  9. MIRALAX [Concomitant]
  10. PREVACID [Concomitant]
  11. ZYRTEC [Concomitant]
  12. LEVODOPA CARBID [Concomitant]
  13. 5-HYDROXTRYPTOPHAN [Concomitant]
  14. ASCORBIC ACID [Concomitant]
  15. FOLIC ACID [Concomitant]
  16. LUPRON [Concomitant]
  17. KLONOPIN [Concomitant]
  18. FELBATOL [Concomitant]
  19. PHENOBARBITAL TAB [Concomitant]
  20. LEVODOPA CARBID [Concomitant]

REACTIONS (4)
  - ATONIC SEIZURES [None]
  - FATIGUE [None]
  - LETHARGY [None]
  - VOMITING [None]
